FAERS Safety Report 5372759-0 (Version None)
Quarter: 2007Q2

REPORT INFORMATION
  Report Type: 
  Country: None (occurrence: None)
  Receive Date: 20070626
  Receipt Date: 20070613
  Transmission Date: 20071010
  Serious: Yes (Hospitalization)
  Sender: FDA-Public Use
  Company Number: GXKR2007KR05083

PATIENT
  Age: 51 Year
  Sex: Male

DRUGS (2)
  1. MIDODRINE (NGX) (MIDODRINE) UNKNOWN [Suspect]
     Indication: ORTHOSTATIC HYPOTENSION
     Dosage: 2.5 MG, TID, UNKNOWN
  2. LEVODOPA (LEVODOPA) [Concomitant]

REACTIONS (9)
  - CEREBELLAR SYNDROME [None]
  - CONTUSION [None]
  - DISORIENTATION [None]
  - DYSARTHRIA [None]
  - DYSPHAGIA [None]
  - GRAND MAL CONVULSION [None]
  - HYPERTENSIVE ENCEPHALOPATHY [None]
  - REVERSIBLE POSTERIOR LEUKOENCEPHALOPATHY SYNDROME [None]
  - SOMNOLENCE [None]
